FAERS Safety Report 9000830 (Version 1)
Quarter: 2013Q1

REPORT INFORMATION
  Report Type: Spontaneous
  Country: US (occurrence: None)
  Receive Date: 20130103
  Receipt Date: 20130103
  Transmission Date: 20140127
  Serious: Yes (Hospitalization, Disabling)
  Sender: FDA-Public Use
  Company Number: None

PATIENT
  Age: 94 Year
  Sex: Female
  Weight: 47.63 kg

DRUGS (1)
  1. LISINOPRIL [Suspect]

REACTIONS (5)
  - Lip swelling [None]
  - Swollen tongue [None]
  - Oedema mouth [None]
  - Speech disorder [None]
  - Dysphonia [None]
